FAERS Safety Report 12662817 (Version 1)
Quarter: 2016Q3

REPORT INFORMATION
  Report Type: Spontaneous
  Country: JP (occurrence: JP)
  Receive Date: 20160818
  Receipt Date: 20160818
  Transmission Date: 20161109
  Serious: Yes (Other)
  Sender: FDA-Public Use
  Company Number: JP-PFIZER INC-2016365503

PATIENT
  Age: 85 Year
  Sex: Male

DRUGS (2)
  1. SUTENT [Suspect]
     Active Substance: SUNITINIB MALATE
     Indication: RENAL CELL CARCINOMA
     Dosage: 25 MG, (TWO 12.5-MG CAPSULES) DAILY ON A 3-WEEKS-ON AND 2-WEEK-OFF
     Route: 048
     Dates: start: 201408, end: 201607
  2. SUTENT [Suspect]
     Active Substance: SUNITINIB MALATE
     Dosage: 25 MG, 2-WEEK-ON AND 2-WEEK-OFF
     Route: 048
     Dates: start: 201408, end: 201607

REACTIONS (6)
  - Anaemia [Recovered/Resolved]
  - Renal cancer [Not Recovered/Not Resolved]
  - Oedema [Recovering/Resolving]
  - Palmar-plantar erythrodysaesthesia syndrome [Recovered/Resolved]
  - Pancytopenia [Recovered/Resolved]
  - Disease progression [Not Recovered/Not Resolved]
